FAERS Safety Report 24212758 (Version 1)
Quarter: 2024Q3

REPORT INFORMATION
  Report Type: Spontaneous
  Country: GB (occurrence: GB)
  Receive Date: 20240815
  Receipt Date: 20240815
  Transmission Date: 20241017
  Serious: Yes (Life-Threatening, Hospitalization, Other)
  Sender: DR REDDYS
  Company Number: None

PATIENT
  Age: 61 Year
  Sex: Female

DRUGS (2)
  1. LACOSAMIDE [Suspect]
     Active Substance: LACOSAMIDE
     Indication: Seizure
  2. LANSOPRAZOLE [Suspect]
     Active Substance: LANSOPRAZOLE
     Indication: Product used for unknown indication

REACTIONS (11)
  - Drug eruption [Recovering/Resolving]
  - Anaemia [Unknown]
  - Bronchopulmonary aspergillosis [Unknown]
  - Human T-cell lymphotropic virus infection [Recovering/Resolving]
  - Lymphopenia [Unknown]
  - Herpes simplex [Recovered/Resolved]
  - Renal injury [Unknown]
  - Lichenoid keratosis [Recovering/Resolving]
  - Liver injury [Unknown]
  - Metabolic encephalopathy [Unknown]
  - Cytomegalovirus infection [Unknown]
